FAERS Safety Report 5296014-2 (Version None)
Quarter: 2007Q2

REPORT INFORMATION
  Report Type: 
  Country: None (occurrence: None)
  Receive Date: 20070406
  Receipt Date: 20070325
  Transmission Date: 20071010
  Serious: Yes (Other)
  Sender: FDA-Public Use
  Company Number: 236869

PATIENT
  Age: 70 Year
  Sex: Male

DRUGS (5)
  1. MABTHERA (RITUXIMAB) CONCENTRATE FOR SOLUTION FOR INFUSION [Suspect]
     Indication: LYMPHOMA
     Dosage: 600 MG, UNK, INTRAVENOUS
     Route: 042
     Dates: start: 20060425, end: 20060525
  2. CYCLOPHOSPHAMIDE [Concomitant]
  3. DOXORUBICIN HCL [Concomitant]
  4. ONCOVIN [Concomitant]
  5. PREDNISONE TAB [Concomitant]

REACTIONS (2)
  - DISEASE RECURRENCE [None]
  - PULMONARY TUBERCULOSIS [None]
